FAERS Safety Report 25422841 (Version 1)
Quarter: 2025Q2

REPORT INFORMATION
  Report Type: Spontaneous
  Country: US (occurrence: None)
  Receive Date: 20250611
  Receipt Date: 20250611
  Transmission Date: 20250717
  Serious: Yes (Hospitalization)
  Sender: FDA-CTU
  Company Number: None

PATIENT
  Age: 91 Year
  Sex: Male

DRUGS (1)
  1. HYDROCHLOROTHIAZIDE [Suspect]
     Active Substance: HYDROCHLOROTHIAZIDE
     Indication: Hypertension
     Dosage: FREQUENCY : DAILY;?
     Route: 048

REACTIONS (4)
  - Fall [None]
  - Hypokalaemia [None]
  - Electrocardiogram QT prolonged [None]
  - Subdural haemorrhage [None]

NARRATIVE: CASE EVENT DATE: 20240223
